FAERS Safety Report 6283254-9 (Version None)
Quarter: 2009Q3

REPORT INFORMATION
  Report Type: 
  Country: None (occurrence: None)
  Receive Date: 20090721
  Receipt Date: 20090721
  Transmission Date: 20100115
  Serious: Yes (Hospitalization)
  Sender: FDA-Public Use
  Company Number: None

PATIENT
  Age: 74 Year
  Sex: Female
  Weight: 59 kg

DRUGS (1)
  1. CEFEPIME [Suspect]
     Indication: INFECTION
     Dosage: 2 GM ONCE IV
     Route: 042
     Dates: start: 20090622, end: 20090622

REACTIONS (1)
  - RASH [None]
